FAERS Safety Report 14527641 (Version 1)
Quarter: 2018Q1

REPORT INFORMATION
  Report Type: Spontaneous
  Country: FR (occurrence: FR)
  Receive Date: 20180213
  Receipt Date: 20180213
  Transmission Date: 20180509
  Serious: Yes (Hospitalization)
  Sender: FDA-Public Use
  Company Number: FR-TEVA-2018-FR-855858

PATIENT
  Age: 37 Year
  Sex: Female

DRUGS (5)
  1. MIRTAZAPINE. [Suspect]
     Active Substance: MIRTAZAPINE
     Indication: INTENTIONAL OVERDOSE
     Route: 048
     Dates: start: 20171029, end: 20171029
  2. ZOLPIDEM [Suspect]
     Active Substance: ZOLPIDEM\ZOLPIDEM TARTRATE
     Indication: INTENTIONAL OVERDOSE
     Route: 048
     Dates: start: 20171029, end: 20171029
  3. ALCOHOL. [Suspect]
     Active Substance: ALCOHOL
     Indication: INTENTIONAL OVERDOSE
     Dosage: NP
     Route: 048
     Dates: start: 20171029, end: 20171029
  4. THERALENE 5 MG, COMPRIM? PELLICUL? S?CABLE [Suspect]
     Active Substance: TRIMEPRAZINE TARTRATE
     Indication: INTENTIONAL OVERDOSE
     Route: 048
     Dates: start: 20171029, end: 20171029
  5. LYRICA [Suspect]
     Active Substance: PREGABALIN
     Indication: INTENTIONAL OVERDOSE
     Route: 048
     Dates: start: 20171029, end: 20171029

REACTIONS (5)
  - Somnolence [Recovered/Resolved]
  - Mydriasis [Recovered/Resolved]
  - Tachycardia [Recovered/Resolved]
  - Electrocardiogram QT prolonged [Recovered/Resolved]
  - Intentional overdose [None]

NARRATIVE: CASE EVENT DATE: 20171029
